FAERS Safety Report 21799623 (Version 1)
Quarter: 2022Q4

REPORT INFORMATION
  Report Type: Spontaneous
  Country: US (occurrence: None)
  Receive Date: 20221229
  Receipt Date: 20221229
  Transmission Date: 20230113
  Serious: Yes (Other)
  Sender: FDA-Public Use
  Company Number: None

PATIENT
  Sex: Female

DRUGS (3)
  1. FYREMADEL [Suspect]
     Active Substance: GANIRELIX ACETATE
     Indication: Product used for unknown indication
     Dosage: OTHER QUANTITY : 250MCG/0.5ML;?FREQUENCY : DAILY;?
     Route: 058
  2. MENOPUR [Concomitant]
  3. PREGNYL [Concomitant]
     Active Substance: CHORIOGONADOTROPIN ALFA

REACTIONS (1)
  - Breast cancer [None]
